FAERS Safety Report 13546743 (Version 1)
Quarter: 2017Q2

REPORT INFORMATION
  Report Type: Spontaneous
  Country: US (occurrence: US)
  Receive Date: 20170515
  Receipt Date: 20170515
  Transmission Date: 20170830
  Serious: Yes (Life-Threatening)
  Sender: FDA-Public Use
  Company Number: None

PATIENT
  Age: 82 Year
  Sex: Male
  Weight: 99.9 kg

DRUGS (1)
  1. ELIQUIS [Suspect]
     Active Substance: APIXABAN
     Indication: ATRIAL FIBRILLATION
     Route: 048
     Dates: start: 20170414, end: 20170514

REACTIONS (11)
  - Faeces discoloured [None]
  - Asthenia [None]
  - Dizziness [None]
  - Anal incontinence [None]
  - Urinary incontinence [None]
  - Abasia [None]
  - Pallor [None]
  - Cold sweat [None]
  - Hyperhidrosis [None]
  - Abdominal pain [None]
  - Dyspnoea [None]

NARRATIVE: CASE EVENT DATE: 20170514
